FAERS Safety Report 6835717-2 (Version None)
Quarter: 2010Q3

REPORT INFORMATION
  Report Type: 
  Country: None (occurrence: None)
  Receive Date: 20100713
  Receipt Date: 20100706
  Transmission Date: 20110219
  Serious: Yes (Other)
  Sender: FDA-Public Use
  Company Number: US-PFIZER INC-2010084941

PATIENT
  Sex: Female
  Weight: 70 kg

DRUGS (2)
  1. MEDROXYPROGESTERONE ACETATE [Suspect]
     Indication: CONTRACEPTION
     Dosage: UNK
     Dates: start: 20090101
  2. MEDROXYPROGESTERONE ACETATE [Suspect]
     Dosage: 150 MG, UNK
     Dates: start: 20100622

REACTIONS (5)
  - DYSPNOEA [None]
  - HYPOTENSION [None]
  - RASH [None]
  - WEIGHT DECREASED [None]
  - WEIGHT INCREASED [None]
